FAERS Safety Report 17520387 (Version 1)
Quarter: 2020Q1

REPORT INFORMATION
  Report Type: Spontaneous
  Country: US (occurrence: US)
  Receive Date: 20200302
  Receipt Date: 20200302
  Transmission Date: 20200409
  Serious: Yes (Hospitalization)
  Sender: FDA-Public Use
  Company Number: None

PATIENT
  Age: 72 Year
  Sex: Male
  Weight: 94.8 kg

DRUGS (1)
  1. COLCHICINE (COLCHICINE 0.6MG TAB) [Suspect]
     Active Substance: COLCHICINE
     Indication: GOUT
     Dates: start: 20191223, end: 20200115

REACTIONS (4)
  - Toxicity to various agents [None]
  - Acute kidney injury [None]
  - Gout [None]
  - Hypotension [None]

NARRATIVE: CASE EVENT DATE: 20200115
